FAERS Safety Report 9664200 (Version 1)
Quarter: 2013Q4

REPORT INFORMATION
  Report Type: Spontaneous
  Country: US (occurrence: None)
  Receive Date: 20131030
  Receipt Date: 20131030
  Transmission Date: 20140711
  Serious: Yes (Hospitalization)
  Sender: FDA-Public Use
  Company Number: None

PATIENT
  Age: 64 Year
  Sex: Male
  Weight: 80 kg

DRUGS (40)
  1. AMPHOTERICIN [Suspect]
     Indication: MENINGITIS CRYPTOCOCCAL
     Route: 042
     Dates: start: 20110706, end: 20110802
  2. HEPARIN [Concomitant]
  3. ACETAMINOPHEN [Concomitant]
  4. ACYCLOVIR [Concomitant]
  5. ASPIRIN [Concomitant]
  6. CALCIUM ACETATE [Concomitant]
  7. CAPTOPRIL [Concomitant]
  8. CEFTRIAXONE [Concomitant]
  9. CHLORASEPTIC SPRAY [Concomitant]
  10. CHLORHEXIDINE [Concomitant]
  11. CLOPIDOGREL [Concomitant]
  12. DIPHENHYDRAMINE [Concomitant]
  13. DOCUSATE [Concomitant]
  14. EPOETIN [Concomitant]
  15. FENTANYL [Concomitant]
  16. FERROUS SULFATE [Concomitant]
  17. FINASTERIDE [Concomitant]
  18. FLUCYTOSINE [Concomitant]
  19. HALOPERIDOL [Concomitant]
  20. HYDRALAZINE [Concomitant]
  21. HYDROCORTISONE [Concomitant]
  22. HYDROMORPHONE [Concomitant]
  23. INSULIN ASPART [Concomitant]
  24. LABETOLOL 200MG TEVA [Concomitant]
  25. LACTOBACILLUS [Concomitant]
  26. LANSOPRAZOLE [Concomitant]
  27. LEVETIRACETAM [Concomitant]
  28. LIDOCAINE PATCH [Concomitant]
  29. LORAZEPAM [Concomitant]
  30. MEROPENEM [Concomitant]
  31. MANNITOL [Concomitant]
  32. METOPROLOL [Concomitant]
  33. MORPHINE [Concomitant]
  34. ONDANSETRON [Concomitant]
  35. RANITIDINE [Concomitant]
  36. SIMVASTATIN [Concomitant]
  37. SENNA [Concomitant]
  38. THIAMINE [Concomitant]
  39. VANCOMYCIN [Concomitant]
  40. ARGATROBAN [Concomitant]

REACTIONS (2)
  - Platelet count decreased [None]
  - Therapeutic response decreased [None]
